FAERS Safety Report 4356477-3 (Version None)
Quarter: 2004Q2

REPORT INFORMATION
  Report Type: 
  Country: None (occurrence: None)
  Receive Date: 20040506
  Receipt Date: 20040426
  Transmission Date: 20050107
  Serious: Yes (Hospitalization)
  Sender: FDA-Public Use
  Company Number: 2004UW08339

PATIENT
  Age: 50 Year
  Sex: Female

DRUGS (1)
  1. CRESTOR [Suspect]
     Dosage: 10 MG DAILY PO
     Route: 048

REACTIONS (1)
  - JAUNDICE CHOLESTATIC [None]
